FAERS Safety Report 8122434-4 (Version None)
Quarter: 2012Q1

REPORT INFORMATION
  Report Type: 
  Country: None (occurrence: None)
  Receive Date: 20120208
  Receipt Date: 20120127
  Transmission Date: 20120608
  Serious: Yes (Hospitalization)
  Sender: FDA-Public Use
  Company Number: US-CELGENEUS-163-50794-12013025

PATIENT
  Age: 73 Year
  Sex: Female
  Weight: 53.6 kg

DRUGS (29)
  1. ONDANSETRON [Concomitant]
     Indication: NAUSEA
     Dosage: 8 MILLIGRAM
     Route: 041
     Dates: start: 20120123
  2. ATIVAN [Concomitant]
     Indication: ANXIETY
  3. PLATELETS [Concomitant]
     Route: 041
     Dates: start: 20120127, end: 20120128
  4. PRIVIGEN [Concomitant]
     Dosage: 20 GRAM
     Route: 041
     Dates: start: 20120127
  5. ATENOLOL [Concomitant]
     Indication: HYPERTENSION
     Dosage: 100 MILLIGRAM
     Route: 048
  6. CIPROFLOXACIN [Concomitant]
     Indication: INFECTION PROPHYLAXIS
     Dosage: 500 MILLIGRAM
     Route: 048
  7. HYDRALAZINE HCL [Concomitant]
     Indication: HYPERTENSION
     Dosage: 25 MILLIGRAM
     Route: 048
     Dates: start: 20120127, end: 20120129
  8. IMMUNE GLOBULIN INTRAVENOUS (HUMAN) [Concomitant]
     Dosage: .4 MILLIGRAM
     Route: 041
  9. MORPHINE [Concomitant]
     Indication: PAIN
     Dosage: 15 MILLIGRAM
     Route: 048
  10. NORFLOXACIN [Concomitant]
     Dosage: 400 MILLIGRAM
     Route: 048
     Dates: start: 20120127, end: 20120129
  11. VIDAZA [Suspect]
     Dosage: 84.5 MILLIGRAM
     Route: 041
     Dates: start: 20120123, end: 20120127
  12. ONDANSETRON HCL [Concomitant]
     Indication: NAUSEA
     Dosage: 8 MILLIGRAM
     Route: 060
  13. MORPHINE [Concomitant]
  14. ACETAMINOPHEN [Concomitant]
     Dosage: 650 MILLIGRAM
     Route: 048
     Dates: start: 20120127
  15. SODIUM CHLORIDE [Concomitant]
     Dosage: 1000 MILLILITER
     Route: 041
     Dates: start: 20120127, end: 20120129
  16. ONDANSETRON [Concomitant]
     Route: 065
     Dates: start: 20120128
  17. ATIVAN [Concomitant]
     Indication: NAUSEA
     Dosage: .5 MILLIGRAM
     Route: 048
  18. PHYTONADIONE [Concomitant]
     Dosage: 5 MILLIGRAM
     Route: 048
     Dates: start: 20120127
  19. DIPHENHYDRAMINE HCL [Concomitant]
     Dosage: 25 MILLIGRAM
     Route: 048
     Dates: start: 20120127
  20. ONDANSETRON [Concomitant]
     Indication: PREMEDICATION
     Route: 048
     Dates: start: 20120123
  21. ELECTROLYTE REPLACEMENT [Concomitant]
     Route: 041
  22. ACYCLOVIR [Concomitant]
     Indication: PROPHYLAXIS
     Dosage: 800 MILLIGRAM
     Route: 048
  23. ENTINOSTAT [Suspect]
     Dosage: 8 MILLIGRAM
     Route: 048
     Dates: start: 20120125, end: 20120127
  24. HYDROXYUREA [Concomitant]
     Route: 065
  25. FLUCONAZOLE [Concomitant]
     Indication: PROPHYLAXIS
     Dosage: 400 MILLIGRAM
     Route: 048
     Dates: start: 20120128
  26. AMOXICILLIN [Concomitant]
     Indication: INFECTION PROPHYLAXIS
     Dosage: 500 MILLIGRAM
     Route: 048
     Dates: start: 20120127, end: 20120129
  27. COMPAZINE [Concomitant]
     Indication: NAUSEA
     Dosage: 5 MILLIGRAM
     Route: 048
     Dates: start: 20120123
  28. MAGNESIUM SULFATE [Concomitant]
     Dosage: 2 GRAM
     Route: 041
     Dates: start: 20120128, end: 20120128
  29. NYSTATIN [Concomitant]
     Dosage: 500000 UNITS
     Route: 048
     Dates: start: 20120127, end: 20120129

REACTIONS (12)
  - HYPONATRAEMIA [None]
  - HYPOKALAEMIA [None]
  - SUBDURAL HAEMATOMA [None]
  - SUBCLAVIAN ARTERY STENOSIS [None]
  - PHOTOPHOBIA [None]
  - NAUSEA [None]
  - FALL [None]
  - MENTAL STATUS CHANGES [None]
  - LETHARGY [None]
  - DIARRHOEA [None]
  - DEHYDRATION [None]
  - VOMITING [None]
